FAERS Safety Report 7829766-5 (Version None)
Quarter: 2011Q4

REPORT INFORMATION
  Report Type: 
  Country: None (occurrence: None)
  Receive Date: 20111020
  Receipt Date: 20111020
  Transmission Date: 20120403
  Serious: Yes (Hospitalization, Other)
  Sender: FDA-Public Use
  Company Number: None

PATIENT
  Sex: Female
  Weight: 97.5234 kg

DRUGS (1)
  1. METHYLPREDNISOLONE [Suspect]
     Indication: RESPIRATORY DISORDER
     Dosage: 21 PILLS SLIDING SCALE 6 DAYS SANDOZ
     Dates: start: 20110920

REACTIONS (2)
  - VOMITING [None]
  - HAEMATOCHEZIA [None]
